FAERS Safety Report 5351067-8 (Version None)
Quarter: 2007Q2

REPORT INFORMATION
  Report Type: 
  Country: None (occurrence: None)
  Receive Date: 20070608
  Receipt Date: 20070531
  Transmission Date: 20071010
  Serious: Yes (Hospitalization, Other)
  Sender: FDA-Public Use
  Company Number: US-PFIZER INC-2006133547

PATIENT
  Sex: Female

DRUGS (2)
  1. CELEBREX [Suspect]
     Indication: ARTHRITIS
     Dates: start: 19990101, end: 19990101
  2. VIOXX [Suspect]
     Dosage: TEXT:UNKNOWN

REACTIONS (2)
  - INSOMNIA [None]
  - ISCHAEMIC STROKE [None]
